FAERS Safety Report 26192023 (Version 1)
Quarter: 2025Q4

REPORT INFORMATION
  Report Type: Spontaneous
  Country: US (occurrence: None)
  Receive Date: 20251223
  Receipt Date: 20251223
  Transmission Date: 20260117
  Serious: Yes (Death)
  Sender: FDA-CTU
  Company Number: None

PATIENT
  Sex: Female

DRUGS (1)
  1. PROLIA [Suspect]
     Active Substance: DENOSUMAB
     Indication: Product used for unknown indication
     Dosage: INJECT CONTENT OF ONE SYRINGE UNDER THE SKIN (SUBCUTANEOUS INJECTION) EVERY 6 MONTHS
     Route: 058
     Dates: start: 20250923

REACTIONS (1)
  - Death [None]
